FAERS Safety Report 10964433 (Version 2)
Quarter: 2015Q2

REPORT INFORMATION
  Report Type: Spontaneous
  Country: DE (occurrence: DE)
  Receive Date: 20150329
  Receipt Date: 20150418
  Transmission Date: 20150821
  Serious: Yes (Other)
  Sender: FDA-Public Use
  Company Number: PHHY2015DE033308

PATIENT
  Sex: Male
  Weight: 118 kg

DRUGS (3)
  1. CLOZAPIN 1A PHARMA [Suspect]
     Active Substance: CLOZAPINE
     Indication: SCHIZOPHRENIA, PARANOID TYPE
     Dosage: 1 DF (25 MG), QD
     Route: 065
     Dates: start: 20100930, end: 20140916
  2. CLOZAPIN 1A PHARMA [Suspect]
     Active Substance: CLOZAPINE
     Dosage: 0.25 DF (200 MG), BID
     Route: 065
     Dates: start: 20150310, end: 20150325
  3. CLOZAPIN 1A PHARMA [Suspect]
     Active Substance: CLOZAPINE
     Dosage: 0.5 DF (200 MG), BID
     Route: 065
     Dates: end: 20150310

REACTIONS (4)
  - Schizophrenia [Unknown]
  - Leukopenia [Recovered/Resolved]
  - Thrombocytopenia [Recovered/Resolved]
  - Splenomegaly [Unknown]
